FAERS Safety Report 18795469 (Version 1)
Quarter: 2021Q1

REPORT INFORMATION
  Report Type: Spontaneous
  Country: US (occurrence: US)
  Receive Date: 20210127
  Receipt Date: 20210127
  Transmission Date: 20210419
  Serious: No
  Sender: FDA-Public Use
  Company Number: US-GLAXOSMITHKLINE-USCH2021000776

PATIENT
  Age: 82 Year
  Sex: Female

DRUGS (1)
  1. ABREVA [Suspect]
     Active Substance: DOCOSANOL
     Indication: HERPES SIMPLEX
     Dosage: UNK

REACTIONS (5)
  - Oral herpes [Unknown]
  - Pruritus [Unknown]
  - Herpes simplex [Unknown]
  - Blister [Unknown]
  - Product use in unapproved indication [Unknown]
